FAERS Safety Report 10028247 (Version 2)
Quarter: 2014Q1

REPORT INFORMATION
  Report Type: Spontaneous
  Country: US (occurrence: None)
  Receive Date: 20140307
  Receipt Date: 20140327
  Transmission Date: 20141002
  Serious: Yes (Death)
  Sender: FDA-Public Use
  Company Number: 2014-US-002707

PATIENT
  Age: 40 Year
  Sex: Male

DRUGS (10)
  1. FAZACLO ODT [Suspect]
     Route: 048
     Dates: start: 20111010, end: 20130429
  2. LOVAZA (OMEGA-3-ACID ETHYL ESTER) [Concomitant]
  3. LAMOTRIGINE (LAMOTRIGINE) [Concomitant]
  4. ATORVASTATIN CALCIUM (ATORVASTATIN CALCIUM) [Concomitant]
  5. CLOTRIMAZOLE (CLOTRIMAZOLE) [Concomitant]
  6. DESMOPRESSIN ACETATE (DESMOPRESSIN ACETATE) [Concomitant]
  7. DOCUSATE CALCIUM (DOCUSATE CALCIUM) [Concomitant]
  8. FIBER-LAX (POLYCARBOPHIL CALCIUM) [Concomitant]
  9. GLYCOPYRROLATE (GLYCOPYRRONIUM BROMIDE) [Concomitant]
  10. IRON (FERROUS SULFATE) [Concomitant]

REACTIONS (2)
  - Death [None]
  - Colonic pseudo-obstruction [None]
